FAERS Safety Report 7537842-X (Version None)
Quarter: 2011Q2

REPORT INFORMATION
  Report Type: 
  Country: None (occurrence: None)
  Receive Date: 20110609
  Receipt Date: 20110604
  Transmission Date: 20111010
  Serious: Yes (Hospitalization, Other)
  Sender: FDA-Public Use
  Company Number: CA-ABBOTT-11P-028-0730156-00

PATIENT
  Sex: Female
  Weight: 38 kg

DRUGS (6)
  1. HUMIRA [Suspect]
     Route: 058
     Dates: start: 20110501
  2. AZATHIOPRINE [Concomitant]
     Indication: CROHN'S DISEASE
     Route: 048
  3. CALCIUM CARBONATE [Concomitant]
     Indication: MINERAL SUPPLEMENTATION
     Route: 048
  4. HUMIRA [Suspect]
     Indication: CROHN'S DISEASE
     Route: 058
     Dates: start: 20100721
  5. VITAMIN D [Concomitant]
     Indication: VITAMIN SUPPLEMENTATION
  6. LOZEC [Concomitant]
     Indication: GASTRIC DISORDER
     Route: 048

REACTIONS (7)
  - CROHN'S DISEASE [None]
  - DECREASED APPETITE [None]
  - HAEMOGLOBIN DECREASED [None]
  - PYREXIA [None]
  - GASTROINTESTINAL DISORDER [None]
  - RASH MACULAR [None]
  - WEIGHT DECREASED [None]
